FAERS Safety Report 23624395 (Version 2)
Quarter: 2024Q3

REPORT INFORMATION
  Report Type: Spontaneous
  Country: NL (occurrence: NL)
  Receive Date: 20240312
  Receipt Date: 20240718
  Transmission Date: 20241017
  Serious: Yes (Hospitalization)
  Sender: CELLTRION
  Company Number: NL-CELLTRION INC.-2024NL005797

PATIENT

DRUGS (2)
  1. BEVACIZUMAB [Suspect]
     Active Substance: BEVACIZUMAB
     Indication: Neoplasm
     Dosage: 1375 MG, EVERY 3 WEEKS
     Route: 042
     Dates: start: 20240119, end: 20240119
  2. ATEZOLIZUMAB [Suspect]
     Active Substance: ATEZOLIZUMAB
     Indication: Neoplasm
     Dosage: 1200 MG, EVERY 3 WEEKS
     Route: 042
     Dates: start: 20240119, end: 20240119

REACTIONS (1)
  - Influenza like illness [Recovered/Resolved]

NARRATIVE: CASE EVENT DATE: 20240131
